FAERS Safety Report 4757984-1 (Version None)
Quarter: 2005Q3

REPORT INFORMATION
  Report Type: 
  Country: None (occurrence: None)
  Receive Date: 20050826
  Receipt Date: 20050107
  Transmission Date: 20060218
  Serious: Yes (Hospitalization)
  Sender: FDA-Public Use
  Company Number: CIP05000055

PATIENT
  Sex: Female

DRUGS (1)
  1. ASACOL [Suspect]
     Indication: INFLAMMATORY BOWEL DISEASE
     Dosage: ORAL
     Route: 048
     Dates: start: 20040701, end: 20040901

REACTIONS (2)
  - HEPATITIS [None]
  - LIVER FUNCTION TEST ABNORMAL [None]
